FAERS Safety Report 17265111 (Version 3)
Quarter: 2020Q2

REPORT INFORMATION
  Report Type: Report from Study
  Country: None (occurrence: US)
  Receive Date: 20200113
  Receipt Date: 20200526
  Transmission Date: 20200713
  Serious: Yes (Hospitalization)
  Sender: FDA-Public Use
  Company Number: US-ABBVIE-20P-163-3228735-00

PATIENT
  Age: 56 Year
  Sex: Female

DRUGS (3)
  1. RINVOQ [Suspect]
     Active Substance: UPADACITINIB
     Indication: RHEUMATOID ARTHRITIS
     Dosage: ER
     Route: 048
     Dates: start: 20191113
  2. ASPIRIN. [Concomitant]
     Active Substance: ASPIRIN
     Indication: PRODUCT USED FOR UNKNOWN INDICATION
  3. PREDNISONE. [Concomitant]
     Active Substance: PREDNISONE
     Indication: PRODUCT USED FOR UNKNOWN INDICATION

REACTIONS (8)
  - Haematoma [Unknown]
  - Bone pain [Unknown]
  - Pain in extremity [Unknown]
  - Arthritis [Unknown]
  - Atrial fibrillation [Unknown]
  - Anaemia postoperative [Unknown]
  - Therapeutic product effect decreased [Unknown]
  - Vascular graft [Recovered/Resolved]

NARRATIVE: CASE EVENT DATE: 20191224
